FAERS Safety Report 5566647-4 (Version None)
Quarter: 2007Q4

REPORT INFORMATION
  Report Type: 
  Country: None (occurrence: None)
  Receive Date: 20071218
  Receipt Date: 20071218
  Transmission Date: 20080405
  Serious: No
  Sender: FDA-Public Use
  Company Number: None

PATIENT
  Age: 70 Year
  Sex: Male
  Weight: 68.0396 kg

DRUGS (13)
  1. DIVALPROEX SODIUM [Suspect]
     Dosage: 1000MG PO
     Route: 048
  2. QUETIAPINE [Suspect]
     Dosage: 600MG PO
     Route: 048
  3. DONEPEZIL HCL [Concomitant]
  4. SEROQUEL [Concomitant]
  5. NAMENDA [Concomitant]
  6. MIRALAX [Concomitant]
  7. DEPAKOTE [Concomitant]
  8. DIPHENHYDRAMINE HCL [Concomitant]
  9. TRAZODONE HCL [Concomitant]
  10. ASPIRIN [Concomitant]
  11. DSS [Concomitant]
  12. HALOPERIDOL [Concomitant]
  13. DIFLUCAN [Concomitant]

REACTIONS (1)
  - LIVER FUNCTION TEST ABNORMAL [None]
